FAERS Safety Report 6212931-0 (Version None)
Quarter: 2009Q2

REPORT INFORMATION
  Report Type: 
  Country: None (occurrence: None)
  Receive Date: 20090603
  Receipt Date: 20090522
  Transmission Date: 20091009
  Serious: Yes (Hospitalization, Other)
  Sender: FDA-Public Use
  Company Number: AU-NOVOPROD-286374

PATIENT
  Sex: Female

DRUGS (5)
  1. NOVORAPID [Suspect]
     Indication: GESTATIONAL DIABETES
  2. PROTAPHANE [Suspect]
     Indication: GESTATIONAL DIABETES
  3. HUMALOG [Concomitant]
  4. LANTUS [Concomitant]
  5. HUMALIN [Concomitant]

REACTIONS (3)
  - ANAPHYLACTIC REACTION [None]
  - INDUCED LABOUR [None]
  - PREGNANCY [None]
